FAERS Safety Report 16416776 (Version 1)
Quarter: 2019Q2

REPORT INFORMATION
  Report Type: Spontaneous
  Country: CH (occurrence: CH)
  Receive Date: 20190611
  Receipt Date: 20190611
  Transmission Date: 20190711
  Serious: Yes (Life-Threatening, Other)
  Sender: FDA-Public Use
  Company Number: PHHY2019CH130944

PATIENT
  Age: 8 Month
  Sex: Female

DRUGS (38)
  1. CYTARABINE. [Suspect]
     Active Substance: CYTARABINE
     Dosage: 640 MG, IN TOTAL
     Route: 042
     Dates: start: 20180921, end: 20180921
  2. METHYLPREDNISOLONE. [Concomitant]
     Active Substance: METHYLPREDNISOLONE
     Dosage: 4.8 MG, IN TOTAL
     Route: 037
     Dates: start: 20180831, end: 20180831
  3. METHYLPREDNISOLONE. [Concomitant]
     Active Substance: METHYLPREDNISOLONE
     Dosage: 4.8 MG, IN TOTAL
     Route: 037
     Dates: start: 20180911, end: 20180911
  4. CYTARABINE. [Suspect]
     Active Substance: CYTARABINE
     Dosage: 15 MG, IN TOTAL
     Route: 037
     Dates: start: 20180917, end: 20180917
  5. CYTARABINE. [Suspect]
     Active Substance: CYTARABINE
     Dosage: 640 MG, IN TOTAL
     Route: 042
     Dates: start: 20180927, end: 20180927
  6. CYTARABINE. [Suspect]
     Active Substance: CYTARABINE
     Dosage: 640 MG, IN TOTAL
     Route: 042
     Dates: start: 20180928, end: 20180928
  7. METHOTREXATE. [Suspect]
     Active Substance: METHOTREXATE
     Dosage: 6 MG, IN TOTAL
     Route: 037
     Dates: start: 20180907, end: 20180907
  8. METHYLPREDNISOLONE. [Concomitant]
     Active Substance: METHYLPREDNISOLONE
     Dosage: 4.8 MG, IN TOTAL
     Route: 037
     Dates: start: 20181011, end: 20181011
  9. METHOTREXATE. [Suspect]
     Active Substance: METHOTREXATE
     Dosage: 6 MG, IN TOTAL
     Route: 037
     Dates: start: 20181011, end: 20181011
  10. METHOTREXATE. [Suspect]
     Active Substance: METHOTREXATE
     Dosage: 6 MG, IN TOTAL
     Route: 037
     Dates: start: 20181211, end: 20181211
  11. METHYLPREDNISOLONE. [Concomitant]
     Active Substance: METHYLPREDNISOLONE
     Dosage: 4.8 MG, IN TOTAL
     Route: 037
     Dates: start: 20181025, end: 20181025
  12. METHYLPREDNISOLONE. [Concomitant]
     Active Substance: METHYLPREDNISOLONE
     Dosage: 4.8 MG, IN TOTAL
     Route: 037
     Dates: start: 20181031, end: 20181031
  13. METHOTREXATE. [Suspect]
     Active Substance: METHOTREXATE
     Indication: ACUTE LYMPHOCYTIC LEUKAEMIA
     Dosage: 6 MG, IN TOTAL
     Route: 037
     Dates: start: 20180731, end: 20180731
  14. METHOTREXATE. [Suspect]
     Active Substance: METHOTREXATE
     Dosage: 6 MG, IN TOTAL
     Route: 037
     Dates: start: 20181019, end: 20181019
  15. METHOTREXATE. [Suspect]
     Active Substance: METHOTREXATE
     Dosage: 6 MG, IN TOTAL
     Route: 037
     Dates: start: 20181031, end: 20181031
  16. METHOTREXATE. [Suspect]
     Active Substance: METHOTREXATE
     Dosage: 6 MG, IN TOTAL
     Route: 037
     Dates: start: 20181218, end: 20181218
  17. METHYLPREDNISOLONE. [Concomitant]
     Active Substance: METHYLPREDNISOLONE
     Dosage: 4.8 MG, IN TOTAL
     Route: 037
     Dates: start: 20181019, end: 20181019
  18. METHOTREXATE. [Suspect]
     Active Substance: METHOTREXATE
     Dosage: 6 MG, IN TOTAL
     Route: 037
     Dates: start: 20181025, end: 20181025
  19. METHOTREXATE. [Suspect]
     Active Substance: METHOTREXATE
     Dosage: UNK UKN, UNK
     Route: 065
     Dates: start: 20190515, end: 20190515
  20. IDARUBICINE [Concomitant]
     Active Substance: IDARUBICIN
     Indication: PRODUCT USED FOR UNKNOWN INDICATION
     Dosage: 3 MG, QD
     Route: 042
     Dates: start: 20181204, end: 20181208
  21. CYTARABINE. [Suspect]
     Active Substance: CYTARABINE
     Dosage: 15 MG, IN TOTAL
     Route: 037
     Dates: start: 20180904, end: 20180904
  22. CYTARABINE. [Suspect]
     Active Substance: CYTARABINE
     Dosage: 15 MG, IN TOTAL
     Route: 037
     Dates: start: 20180911, end: 20180911
  23. CYTARABINE. [Suspect]
     Active Substance: CYTARABINE
     Dosage: 640 MG, IN TOTAL
     Route: 042
     Dates: start: 20181204, end: 20181208
  24. METHOTREXATE. [Suspect]
     Active Substance: METHOTREXATE
     Dosage: 1000 MG, IN TOTAL
     Route: 041
     Dates: start: 20180830, end: 20180830
  25. METHYLPREDNISOLONE. [Concomitant]
     Active Substance: METHYLPREDNISOLONE
     Indication: ACUTE LYMPHOCYTIC LEUKAEMIA
     Dosage: 4.8 MG, TOTAL
     Route: 037
     Dates: start: 20180719, end: 20180719
  26. METHYLPREDNISOLONE. [Concomitant]
     Active Substance: METHYLPREDNISOLONE
     Dosage: 4.8 MG, IN TOTAL
     Route: 037
     Dates: start: 20180731, end: 20180731
  27. METHYLPREDNISOLONE. [Concomitant]
     Active Substance: METHYLPREDNISOLONE
     Dosage: 4.8 MG, IN TOTAL
     Route: 037
     Dates: start: 20180904, end: 20180904
  28. METHYLPREDNISOLONE. [Concomitant]
     Active Substance: METHYLPREDNISOLONE
     Dosage: 4.8 MG, IN TOTAL
     Route: 037
     Dates: start: 20180917, end: 20180917
  29. LEVETIRACETAM. [Concomitant]
     Active Substance: LEVETIRACETAM
     Indication: PRODUCT USED FOR UNKNOWN INDICATION
     Dosage: UNK UKN, UNK
     Route: 065
     Dates: start: 20190510, end: 20190514
  30. METHOTREXATE. [Suspect]
     Active Substance: METHOTREXATE
     Dosage: 6 MG, IN TOTAL
     Route: 037
     Dates: start: 20180831, end: 20180831
  31. METHOTREXATE. [Suspect]
     Active Substance: METHOTREXATE
     Dosage: 1000 MG, IN TOTAL
     Route: 041
     Dates: start: 20180906, end: 20180906
  32. METHOTREXATE. [Suspect]
     Active Substance: METHOTREXATE
     Dosage: 6 MG, IN TOTAL
     Route: 037
     Dates: start: 20181203, end: 20181203
  33. CYTARABINE. [Suspect]
     Active Substance: CYTARABINE
     Indication: ACUTE LYMPHOCYTIC LEUKAEMIA
     Dosage: 15 MG, IN TOTAL
     Route: 037
     Dates: start: 20180719, end: 20180719
  34. CYTARABINE. [Suspect]
     Active Substance: CYTARABINE
     Dosage: 640 MG, IN TOTAL
     Route: 042
     Dates: start: 20180920, end: 20180920
  35. METHOTREXATE. [Suspect]
     Active Substance: METHOTREXATE
     Dosage: 6 MG, IN TOTAL
     Route: 037
     Dates: start: 20181004, end: 20181004
  36. METHYLPREDNISOLONE. [Concomitant]
     Active Substance: METHYLPREDNISOLONE
     Dosage: 4.8 MG, IN TOTAL
     Route: 037
     Dates: start: 20180907, end: 20180907
  37. METHYLPREDNISOLONE. [Concomitant]
     Active Substance: METHYLPREDNISOLONE
     Dosage: 4.8 MG, IN TOTAL
     Route: 037
     Dates: start: 20181004, end: 20181004
  38. FLUDARABINE [Concomitant]
     Active Substance: FLUDARABINE PHOSPHATE
     Indication: PRODUCT USED FOR UNKNOWN INDICATION
     Dosage: 9 MG, QD
     Route: 042
     Dates: start: 20181204, end: 20181208

REACTIONS (5)
  - Loss of consciousness [Recovered/Resolved]
  - Hypoxia [Recovered/Resolved]
  - Generalised tonic-clonic seizure [Recovered/Resolved]
  - Eye movement disorder [Recovered/Resolved]
  - Generalised tonic-clonic seizure [Recovered/Resolved]

NARRATIVE: CASE EVENT DATE: 20181224
